FAERS Safety Report 22671152 (Version 5)
Quarter: 2024Q4

REPORT INFORMATION
  Report Type: Spontaneous
  Country: JP (occurrence: JP)
  Receive Date: 20230705
  Receipt Date: 20241216
  Transmission Date: 20250115
  Serious: Yes (Death, Life-Threatening, Hospitalization, Other)
  Sender: ALEXION PHARMACEUTICALS
  Company Number: 2023A144760

PATIENT
  Age: 78 Year
  Weight: 59 kg

DRUGS (28)
  1. TAGRISSO [Suspect]
     Active Substance: OSIMERTINIB
     Indication: Non-small cell lung cancer
     Dosage: 80 MILLIGRAM, QD
  2. TAGRISSO [Suspect]
     Active Substance: OSIMERTINIB
     Dosage: 80 MILLIGRAM, QD
     Route: 048
  3. TAGRISSO [Suspect]
     Active Substance: OSIMERTINIB
     Dosage: 80 MILLIGRAM, QD
  4. TAGRISSO [Suspect]
     Active Substance: OSIMERTINIB
     Dosage: 80 MILLIGRAM, QD
     Route: 048
  5. AMLODIPINE [Concomitant]
     Active Substance: AMLODIPINE BESYLATE
     Indication: Hypertension
     Dosage: 2.5 MILLIGRAM, QD
  6. AMLODIPINE [Concomitant]
     Active Substance: AMLODIPINE BESYLATE
     Dosage: 2.5 MILLIGRAM, QD
     Route: 048
  7. AMLODIPINE [Concomitant]
     Active Substance: AMLODIPINE BESYLATE
     Dosage: 2.5 MILLIGRAM, QD
  8. AMLODIPINE [Concomitant]
     Active Substance: AMLODIPINE BESYLATE
     Dosage: 2.5 MILLIGRAM, QD
     Route: 048
  9. APIXABAN [Concomitant]
     Active Substance: APIXABAN
     Indication: Transient ischaemic attack
     Dosage: 20 MILLIGRAM, QD
  10. APIXABAN [Concomitant]
     Active Substance: APIXABAN
     Dosage: 20 MILLIGRAM, QD
     Route: 048
  11. APIXABAN [Concomitant]
     Active Substance: APIXABAN
     Dosage: 20 MILLIGRAM, QD
  12. APIXABAN [Concomitant]
     Active Substance: APIXABAN
     Dosage: 20 MILLIGRAM, QD
     Route: 048
  13. TADALAFIL OD ZA [Concomitant]
     Indication: Benign prostatic hyperplasia
     Dosage: 5 MILLIGRAM, QD
  14. TADALAFIL OD ZA [Concomitant]
     Dosage: 5 MILLIGRAM, QD
     Route: 048
  15. TADALAFIL OD ZA [Concomitant]
     Dosage: 5 MILLIGRAM, QD
  16. TADALAFIL OD ZA [Concomitant]
     Dosage: 5 MILLIGRAM, QD
     Route: 048
  17. VIBEGRON [Concomitant]
     Active Substance: VIBEGRON
     Indication: Hypertonic bladder
     Dosage: 50 MILLIGRAM, QD
  18. VIBEGRON [Concomitant]
     Active Substance: VIBEGRON
     Dosage: 50 MILLIGRAM, QD
     Route: 048
  19. VIBEGRON [Concomitant]
     Active Substance: VIBEGRON
     Dosage: 50 MILLIGRAM, QD
  20. VIBEGRON [Concomitant]
     Active Substance: VIBEGRON
     Dosage: 50 MILLIGRAM, QD
     Route: 048
  21. FEBUXOSTAT [Concomitant]
     Active Substance: FEBUXOSTAT
     Indication: Hyperuricaemia
     Dosage: 20 MILLIGRAM, QD
  22. FEBUXOSTAT [Concomitant]
     Active Substance: FEBUXOSTAT
     Dosage: 20 MILLIGRAM, QD
     Route: 048
  23. FEBUXOSTAT [Concomitant]
     Active Substance: FEBUXOSTAT
     Dosage: 20 MILLIGRAM, QD
  24. FEBUXOSTAT [Concomitant]
     Active Substance: FEBUXOSTAT
     Dosage: 20 MILLIGRAM, QD
     Route: 048
  25. ELIQUIS [Concomitant]
     Active Substance: APIXABAN
     Indication: Transient ischaemic attack
     Dosage: 20 MILLIGRAM, QD
  26. ELIQUIS [Concomitant]
     Active Substance: APIXABAN
     Dosage: 20 MILLIGRAM, QD
     Route: 048
  27. ELIQUIS [Concomitant]
     Active Substance: APIXABAN
     Dosage: 20 MILLIGRAM, QD
  28. ELIQUIS [Concomitant]
     Active Substance: APIXABAN
     Dosage: 20 MILLIGRAM, QD
     Route: 048

REACTIONS (2)
  - Death [Fatal]
  - Pulmonary toxicity [Recovered/Resolved]
